FAERS Safety Report 6736737-9 (Version None)
Quarter: 2010Q2

REPORT INFORMATION
  Report Type: 
  Country: None (occurrence: None)
  Receive Date: 20100521
  Receipt Date: 20100519
  Transmission Date: 20101027
  Serious: Yes (Death)
  Sender: FDA-Public Use
  Company Number: PHHO2010BE07095

PATIENT
  Age: 68 Year
  Sex: Male
  Weight: 109 kg

DRUGS (2)
  1. CERTICAN [Suspect]
     Indication: HEART TRANSPLANT
     Dosage: UNK
     Route: 048
     Dates: start: 20071222, end: 20080326
  2. PROGRAF [Concomitant]
     Indication: HEART TRANSPLANT
     Dosage: UNK
     Route: 048
     Dates: start: 20071222, end: 20100317

REACTIONS (3)
  - HAEMORRHAGE [None]
  - NEOPLASM [None]
  - NEOPLASM PROGRESSION [None]
